FAERS Safety Report 7698881-1 (Version None)
Quarter: 2011Q3

REPORT INFORMATION
  Report Type: 
  Country: None (occurrence: None)
  Receive Date: 20110819
  Receipt Date: 20110810
  Transmission Date: 20111222
  Serious: Yes (Other)
  Sender: FDA-Public Use
  Company Number: PHHY2011CA66087

PATIENT
  Sex: Male

DRUGS (4)
  1. CLONAZEPAM [Suspect]
     Indication: SCHIZOPHRENIA
     Dosage: UNK UKN, UNK
     Route: 048
     Dates: start: 20100801, end: 20110801
  2. PEGASYS [Concomitant]
     Dosage: UNK UKN, UNK
  3. CLOZAPINE [Suspect]
     Indication: SCHIZOPHRENIA
     Route: 048
     Dates: start: 20100708
  4. CLOZAPINE [Suspect]
     Dosage: 500 MG, UNK
     Route: 048
     Dates: start: 20100801, end: 20110801

REACTIONS (3)
  - NEUTROPENIA [None]
  - HEPATITIS C [None]
  - FULL BLOOD COUNT ABNORMAL [None]
